FAERS Safety Report 12200024 (Version 3)
Quarter: 2016Q3

REPORT INFORMATION
  Report Type: Spontaneous
  Country: US (occurrence: US)
  Receive Date: 20160322
  Receipt Date: 20160815
  Transmission Date: 20161109
  Serious: Yes (Other)
  Sender: FDA-Public Use
  Company Number: US-AKORN PHARMACEUTICALS-2016AKN00162

PATIENT
  Sex: Female

DRUGS (3)
  1. UNSPECIFIED ORAL COMBINATION CONTRACEPTIVE [Concomitant]
     Route: 048
  2. MYORISAN [Suspect]
     Active Substance: ISOTRETINOIN
     Dosage: UNK
     Dates: start: 20150708
  3. MYORISAN [Suspect]
     Active Substance: ISOTRETINOIN
     Dosage: 80 MG, 1X/DAY
     Dates: start: 20150810, end: 2016

REACTIONS (2)
  - Maternal exposure before pregnancy [Not Recovered/Not Resolved]
  - Product use issue [Not Recovered/Not Resolved]
